FAERS Safety Report 21673979 (Version 1)
Quarter: 2022Q4

REPORT INFORMATION
  Report Type: Spontaneous
  Country: NO (occurrence: NO)
  Receive Date: 20221202
  Receipt Date: 20221202
  Transmission Date: 20230113
  Serious: Yes (Other)
  Sender: FDA-Public Use
  Company Number: None

PATIENT
  Age: 60 Year
  Sex: Female
  Weight: 65 kg

DRUGS (2)
  1. ERYTHROMYCIN [Suspect]
     Active Substance: ERYTHROMYCIN
     Indication: Sinusitis
     Dosage: 5 MILLILITER, Q6H
     Route: 065
     Dates: start: 20220419
  2. CETRAXAL [Concomitant]
     Active Substance: CIPROFLOXACIN
     Indication: Otitis externa
     Dosage: 2-3 DROPS PER DAY.
     Route: 065
     Dates: start: 20220416, end: 20220420

REACTIONS (1)
  - Haematochezia [Unknown]

NARRATIVE: CASE EVENT DATE: 20220420
